FAERS Safety Report 10231545 (Version 1)
Quarter: 2014Q2

REPORT INFORMATION
  Report Type: Report from Study
  Country: US (occurrence: US)
  Receive Date: 20140611
  Receipt Date: 20140611
  Transmission Date: 20141212
  Serious: Yes (Death, Other)
  Sender: FDA-Public Use
  Company Number: US-BAXTER-2014BAX029149

PATIENT
  Age: 29 Year
  Sex: Female

DRUGS (2)
  1. OSMITROL INJECTION (MANNITOL INJECTION, USP) [Suspect]
     Indication: REDUCTION OF INCREASED INTRACRANIAL PRESSURE
     Route: 065
  2. HYPERTONIC SALINE SOLUTION [Suspect]
     Indication: REDUCTION OF INCREASED INTRACRANIAL PRESSURE
     Route: 065

REACTIONS (3)
  - Brain herniation [Not Recovered/Not Resolved]
  - Death [Fatal]
  - Drug ineffective [Not Recovered/Not Resolved]
